FAERS Safety Report 7542878-9 (Version None)
Quarter: 2011Q2

REPORT INFORMATION
  Report Type: 
  Country: None (occurrence: None)
  Receive Date: 20110613
  Receipt Date: 20110531
  Transmission Date: 20111010
  Serious: Yes (Hospitalization, Other)
  Sender: FDA-Public Use
  Company Number: PHHY2011BR48042

PATIENT
  Sex: Female

DRUGS (1)
  1. EXELON [Suspect]
     Route: 048

REACTIONS (5)
  - VOMITING [None]
  - CONVULSION [None]
  - TREMOR [None]
  - TOXICITY TO VARIOUS AGENTS [None]
  - ASTHENIA [None]
